FAERS Safety Report 6724437-0 (Version None)
Quarter: 2010Q2

REPORT INFORMATION
  Report Type: 
  Country: None (occurrence: None)
  Receive Date: 20100513
  Receipt Date: 20100506
  Transmission Date: 20101027
  Serious: Yes (Other)
  Sender: FDA-Public Use
  Company Number: ES-PFIZER INC-2010057493

PATIENT
  Age: 67 Year
  Sex: Female

DRUGS (1)
  1. PHENYTOIN SODIUM CAP [Suspect]
     Indication: EPILEPSY
     Dosage: 300 MG A DAY
     Route: 048
     Dates: start: 20100201, end: 20100218

REACTIONS (1)
  - URTICARIA [None]
